FAERS Safety Report 6206335-4 (Version None)
Quarter: 2009Q2

REPORT INFORMATION
  Report Type: 
  Country: None (occurrence: None)
  Receive Date: 20090528
  Receipt Date: 20090521
  Transmission Date: 20091009
  Serious: Yes (Disabling)
  Sender: FDA-Public Use
  Company Number: JP-ASTRAZENECA-2009AP03283

PATIENT
  Age: 67 Year
  Sex: Female
  Weight: 47 kg

DRUGS (9)
  1. XYLOCAINE W/ EPINEPHRINE [Suspect]
     Indication: LOCAL ANAESTHESIA
     Route: 040
  2. OXYGEN FOR MEDICAL USE [Concomitant]
     Route: 055
  3. FENTANYL-100 [Concomitant]
     Indication: INDUCTION OF ANAESTHESIA
     Route: 042
  4. SEVOFLURANE [Concomitant]
     Indication: INDUCTION OF ANAESTHESIA
     Dosage: DOSE UNKNOWN
     Route: 055
  5. VECURONIUM BROMIDE [Concomitant]
     Route: 065
  6. EPHEDRIN [Concomitant]
     Route: 042
  7. LIPOVAS [Concomitant]
     Indication: HYPERLIPIDAEMIA
     Dosage: DOSE UNKNOWN
     Route: 048
  8. NORVASC [Concomitant]
     Indication: HYPERTENSION
     Dosage: DOSE UNKNOWN
     Route: 048
  9. DIOVAN [Concomitant]
     Indication: HYPERTENSION
     Dosage: DOSE UNKNOWN
     Route: 048

REACTIONS (1)
  - ANGLE CLOSURE GLAUCOMA [None]
